FAERS Safety Report 14520506 (Version 1)
Quarter: 2018Q1

REPORT INFORMATION
  Report Type: Spontaneous
  Country: JP (occurrence: JP)
  Receive Date: 20180212
  Receipt Date: 20180212
  Transmission Date: 20180509
  Serious: Yes (Hospitalization, Other)
  Sender: FDA-Public Use
  Company Number: JP-SA-2018SA033562

PATIENT
  Sex: Female
  Weight: 52 kg

DRUGS (14)
  1. 5-FU [Suspect]
     Active Substance: FLUOROURACIL
     Indication: RECTAL CANCER
     Dosage: TOTAL 2 CYCLES, 924 MG/BODY 600 MG/M2
     Route: 041
  2. ESOMEPRAZOLE MAGNESIUM HYDRATE [Concomitant]
     Active Substance: ESOMEPRAZOLE MAGNESIUM
     Route: 048
  3. ELPLAT [Suspect]
     Active Substance: OXALIPLATIN
     Indication: RECTAL CANCER
     Dosage: TOTAL 8 CYCLES, 100.1 MG/BODY (65 MG/M2)
     Route: 041
  4. CALCIUM LEVOFOLINATE [Concomitant]
     Active Substance: LEVOLEUCOVORIN CALCIUM
     Dosage: TOTAL 8 CYCLES
     Route: 065
  5. SODIUM FERROUS CITRATE [Concomitant]
     Active Substance: SODIUM FERROUS CITRATE
     Route: 048
  6. FERRIC OXIDE [Concomitant]
     Active Substance: FERRIC OXIDE RED
     Route: 065
  7. FENTANYL. [Concomitant]
     Active Substance: FENTANYL
     Route: 065
  8. FUROSEMIDE. [Concomitant]
     Active Substance: FUROSEMIDE
     Route: 048
  9. CALCIUM LEVOFOLINATE [Concomitant]
     Active Substance: LEVOLEUCOVORIN CALCIUM
     Dosage: TOTAL 2 CYCLES
     Route: 065
  10. ELPLAT [Suspect]
     Active Substance: OXALIPLATIN
     Indication: RECTAL CANCER
     Dosage: TOTAL 2 CYCLES, 130.9 MG/BODY (85 MG/M2)
     Route: 041
  11. NEO-MINOPHAGEN C [Concomitant]
     Active Substance: AMMONIUM GLYCYRRHIZATE
     Route: 065
  12. 5-FU [Suspect]
     Active Substance: FLUOROURACIL
     Indication: RECTAL CANCER
     Dosage: TOTAL 8 CYCLES, 3696 MG/BODY/D1-2 (2400 MG/M2/D1-2)
     Route: 041
  13. MINOCYCLINE HYDROCHLORIDE. [Concomitant]
     Active Substance: MINOCYCLINE HYDROCHLORIDE
     Route: 048
  14. CLARITHROMYCIN. [Concomitant]
     Active Substance: CLARITHROMYCIN
     Route: 048

REACTIONS (7)
  - Platelet count decreased [Unknown]
  - Neuropathy peripheral [Unknown]
  - Nausea [Unknown]
  - Hyperammonaemia [Recovered/Resolved]
  - Vomiting [Unknown]
  - Dermatitis acneiform [Unknown]
  - Dehydration [Unknown]
